FAERS Safety Report 15618122 (Version 2)
Quarter: 2018Q4

REPORT INFORMATION
  Report Type: Report from Study
  Country: US (occurrence: US)
  Receive Date: 20181114
  Receipt Date: 20181114
  Transmission Date: 20190205
  Serious: No
  Sender: FDA-Public Use
  Company Number: PHEH2018US047016

PATIENT
  Age: 58 Year
  Sex: Male

DRUGS (1)
  1. ENTRESTO [Suspect]
     Active Substance: SACUBITRIL\VALSARTAN
     Indication: CARDIAC FAILURE CONGESTIVE
     Dosage: (SACUBITRIL IS 49 MG, VALSARTAN 51 MG )
     Route: 048
     Dates: start: 20150821

REACTIONS (2)
  - Energy increased [Unknown]
  - Weight increased [Unknown]

NARRATIVE: CASE EVENT DATE: 2018
